FAERS Safety Report 7595523-0 (Version None)
Quarter: 2011Q3

REPORT INFORMATION
  Report Type: 
  Country: None (occurrence: None)
  Receive Date: 20110707
  Receipt Date: 20110701
  Transmission Date: 20111222
  Serious: Yes (Hospitalization, Other)
  Sender: FDA-Public Use
  Company Number: US-GLAXOSMITHKLINE-A0805374A

PATIENT
  Sex: Male

DRUGS (10)
  1. NIASPAN [Concomitant]
  2. SYNTHROID [Concomitant]
  3. METOPROLOL TARTRATE [Concomitant]
  4. LISINOPRIL [Concomitant]
  5. PROAIR HFA [Concomitant]
  6. PLAVIX [Concomitant]
  7. ALBUTEROL SULFATE AUTOHALER [Concomitant]
  8. RHINOCORT [Concomitant]
  9. ADVAIR DISKUS 100/50 [Suspect]
     Indication: ASTHMA
     Dosage: 1PUFF TWICE PER DAY
     Route: 055
     Dates: start: 20050101
  10. ASPIRIN [Concomitant]

REACTIONS (2)
  - ASTHMA [None]
  - OEDEMA [None]
